FAERS Safety Report 7237141-X (Version None)
Quarter: 2010Q4

REPORT INFORMATION
  Report Type: 
  Country: None (occurrence: None)
  Receive Date: 20101130
  Receipt Date: 20090730
  Transmission Date: 20110411
  Serious: Yes (Hospitalization, Other)
  Sender: FDA-Public Use
  Company Number: 2009-195832-NL

PATIENT
  Age: 47 Year
  Sex: Female
  Weight: 95.3 kg

DRUGS (7)
  1. NUVARING [Suspect]
     Indication: CONTRACEPTION
     Dosage: VAG
     Route: 067
     Dates: start: 20051001, end: 20060501
  2. TYLENOL-500 [Concomitant]
  3. MOTRIN [Concomitant]
  4. CALCIUM [Concomitant]
  5. FISH OIL [Concomitant]
  6. SYNTHROID [Concomitant]
  7. .. [Concomitant]

REACTIONS (6)
  - DEEP VEIN THROMBOSIS [None]
  - HEPATIC LESION [None]
  - PULMONARY EMBOLISM [None]
  - TENDONITIS [None]
  - THROMBOPHLEBITIS [None]
  - UPPER RESPIRATORY TRACT INFECTION [None]
